FAERS Safety Report 5711119-7 (Version None)
Quarter: 2008Q2

REPORT INFORMATION
  Report Type: 
  Country: None (occurrence: None)
  Receive Date: 20080417
  Receipt Date: 20080417
  Transmission Date: 20081010
  Serious: Yes (Other)
  Sender: FDA-Public Use
  Company Number: None

PATIENT
  Age: 14 Year
  Sex: Male
  Weight: 47.6277 kg

DRUGS (2)
  1. ADDERALL 10 [Suspect]
     Indication: ATTENTION DEFICIT/HYPERACTIVITY DISORDER
     Dosage: 20MG 1XDAY PO
     Route: 048
     Dates: start: 20070401, end: 20070501
  2. FOCALIN XR [Suspect]
     Indication: ATTENTION DEFICIT/HYPERACTIVITY DISORDER
     Dosage: 10MG 1XDAY PO
     Route: 048
     Dates: start: 20070923, end: 20070923

REACTIONS (4)
  - ANXIETY [None]
  - CHEST PAIN [None]
  - DECREASED APPETITE [None]
  - INITIAL INSOMNIA [None]
